FAERS Safety Report 11713784 (Version 1)
Quarter: 2015Q4

REPORT INFORMATION
  Report Type: Spontaneous
  Country: CH (occurrence: CH)
  Receive Date: 20151109
  Receipt Date: 20151109
  Transmission Date: 20160304
  Serious: Yes (Other)
  Sender: FDA-Public Use
  Company Number: CH-SHIRE-CH201513634

PATIENT
  Age: 71 Year
  Sex: Female
  Weight: 72 kg

DRUGS (1)
  1. XAGRID [Suspect]
     Active Substance: ANAGRELIDE HYDROCHLORIDE
     Indication: ESSENTIAL THROMBOCYTHAEMIA
     Dosage: 0.5 MG, 1X/DAY:QD
     Route: 048

REACTIONS (2)
  - Heart rate increased [Unknown]
  - Hypotension [Unknown]
